FAERS Safety Report 8978434 (Version 2)
Quarter: 2013Q1

REPORT INFORMATION
  Report Type: Spontaneous
  Country: US (occurrence: US)
  Receive Date: 20121221
  Receipt Date: 20130131
  Transmission Date: 20140127
  Serious: Yes (Other)
  Sender: FDA-Public Use
  Company Number: US-PFIZER INC-2012310110

PATIENT
  Age: 69 Year
  Sex: Female
  Weight: 86.17 kg

DRUGS (7)
  1. CHANTIX [Suspect]
     Indication: SMOKING CESSATION THERAPY
     Dosage: 0.5 MG, 1X/DAY
     Route: 048
  2. CHANTIX [Suspect]
     Dosage: 1 MG, 2X/DAY
     Route: 048
     Dates: start: 20121213
  3. CYMBALTA [Concomitant]
     Dosage: UNK
  4. HYDROCODONE [Concomitant]
     Indication: PAIN
     Dosage: UNK
  5. NEURONTIN [Concomitant]
     Dosage: UNK
  6. METOLAZONE [Concomitant]
     Indication: DIURETIC THERAPY
     Dosage: UNK
  7. SEROQUEL [Concomitant]
     Dosage: UNK

REACTIONS (2)
  - Spinal column stenosis [Not Recovered/Not Resolved]
  - Nausea [Not Recovered/Not Resolved]
